FAERS Safety Report 5612331-8 (Version None)
Quarter: 2008Q1

REPORT INFORMATION
  Report Type: 
  Country: None (occurrence: None)
  Receive Date: 20080204
  Receipt Date: 20080129
  Transmission Date: 20080703
  Serious: Yes (Life-Threatening, Hospitalization)
  Sender: FDA-Public Use
  Company Number: CA-GENENTECH-236325

PATIENT
  Sex: Female
  Weight: 55.1 kg

DRUGS (6)
  1. RITUXIMAB [Suspect]
     Indication: MULTIPLE SCLEROSIS
     Dosage: 2 G, UNK
     Route: 042
     Dates: start: 20050818
  2. BACLOFEN [Concomitant]
     Indication: MUSCLE SPASTICITY
     Dosage: 20 MG, TID
     Dates: start: 20040901
  3. MELOXICAM [Concomitant]
     Indication: PAIN
     Dosage: 7.5 MG, BID
     Dates: start: 20040901
  4. PAXIL [Concomitant]
     Indication: DEPRESSION
     Dosage: 20 MG, QD
     Dates: start: 20050826
  5. VENTOLIN [Concomitant]
     Indication: CHRONIC OBSTRUCTIVE PULMONARY DISEASE
     Dosage: 2 PUFF, QID
     Dates: start: 20060124
  6. FLOVENT [Concomitant]
     Indication: CHRONIC OBSTRUCTIVE PULMONARY DISEASE
     Dosage: 2 PUFF, BID
     Dates: start: 20060124

REACTIONS (1)
  - CHRONIC OBSTRUCTIVE PULMONARY DISEASE [None]
